FAERS Safety Report 25607984 (Version 3)
Quarter: 2025Q3

REPORT INFORMATION
  Report Type: Report from Study
  Country: JP (occurrence: JP)
  Receive Date: 20250725
  Receipt Date: 20250813
  Transmission Date: 20251021
  Serious: Yes (Life-Threatening, Hospitalization)
  Sender: EISAI
  Company Number: JP-Eisai-202505089_LEN-EC_P_1

PATIENT
  Age: 54 Year
  Sex: Female

DRUGS (6)
  1. LENVIMA [Suspect]
     Active Substance: LENVATINIB
     Indication: Endometrial cancer recurrent
     Dates: start: 20250226, end: 20250325
  2. LENVIMA [Suspect]
     Active Substance: LENVATINIB
     Dates: start: 20250404, end: 20250606
  3. CALONAL [Concomitant]
     Active Substance: ACETAMINOPHEN
  4. TU-100 [Concomitant]
     Active Substance: ASIAN GINSENG\GINGER\ZANTHOXYLUM PIPERITUM FRUIT PULP
  5. MIROGABALIN BESYLATE [Concomitant]
     Active Substance: MIROGABALIN BESYLATE
  6. LIVAZEBE [Concomitant]

REACTIONS (6)
  - Hypocalcaemia [Not Recovered/Not Resolved]
  - Hypokalaemia [Unknown]
  - Hypercalcaemia [Not Recovered/Not Resolved]
  - Hypomagnesaemia [Recovered/Resolved]
  - Hypophosphataemia [Not Recovered/Not Resolved]
  - Hypernatraemia [Not Recovered/Not Resolved]

NARRATIVE: CASE EVENT DATE: 20250620
